FAERS Safety Report 5034793-X (Version None)
Quarter: 2006Q2

REPORT INFORMATION
  Report Type: 
  Country: None (occurrence: None)
  Receive Date: 20060627
  Receipt Date: 20060616
  Transmission Date: 20061013
  Serious: Yes (Other)
  Sender: FDA-Public Use
  Company Number: US-JNJFOC-20060604175

PATIENT
  Sex: Female

DRUGS (5)
  1. REMICADE [Suspect]
     Route: 042
  2. REMICADE [Suspect]
     Indication: CROHN'S DISEASE
     Route: 042
  3. ALTACE [Concomitant]
  4. TOPROL-XL [Concomitant]
  5. DYNACIRC CR [Concomitant]

REACTIONS (5)
  - ANAEMIA [None]
  - ARTHRALGIA [None]
  - DIFFICULTY IN WALKING [None]
  - NAUSEA [None]
  - PYREXIA [None]
